FAERS Safety Report 20961782 (Version 1)
Quarter: 2022Q2

REPORT INFORMATION
  Report Type: Spontaneous
  Country: US (occurrence: US)
  Receive Date: 20220615
  Receipt Date: 20220615
  Transmission Date: 20220720
  Serious: Yes (Hospitalization)
  Sender: FDA-Public Use
  Company Number: US-JAZZ-2022-US-014061

PATIENT
  Sex: Male

DRUGS (2)
  1. EPIDIOLEX [Suspect]
     Active Substance: CANNABIDIOL
     Indication: Epilepsy
     Dosage: 740 MILLIGRAM
     Route: 048
     Dates: start: 20211116
  2. EPIDIOLEX [Suspect]
     Active Substance: CANNABIDIOL
     Indication: Lennox-Gastaut syndrome
     Dosage: 10 MILLILITER, BID
     Route: 048
     Dates: start: 20220511

REACTIONS (5)
  - Seizure [Unknown]
  - Dyspnoea [Unknown]
  - Asthma [Unknown]
  - Hypersensitivity [Unknown]
  - Condition aggravated [Unknown]
